FAERS Safety Report 7147020 (Version 3)
Quarter: 2012Q4

REPORT INFORMATION
  Report Type: 
  Country: US (occurrence: US)
  Receive Date: 20091012
  Receipt Date: 20121214
  Transmission Date: 20130627
  Serious: Yes (Disabling, Other)
  Sender: FDA-Public Use
  Company Number: US-PFIZER INC-2008035705

PATIENT
  Age: 48 Year
  Sex: Female
  Weight: 68.04 kg

DRUGS (11)
  1. CHANTIX [Suspect]
     Indication: SMOKING CESSATION THERAPY
     Dosage: 0.5 mg, 1x/day
     Dates: start: 2007
  2. CRESTOR [Concomitant]
  3. ZETIA [Concomitant]
  4. TRICOR [Concomitant]
  5. METOPROLOL [Concomitant]
  6. METFORMIN [Concomitant]
     Indication: DIABETES
  7. ACETYLSALICYLIC ACID [Concomitant]
  8. XANAX [Concomitant]
  9. PLAVIX [Concomitant]
  10. PROZAC [Concomitant]
  11. AMBIEN [Concomitant]

REACTIONS (12)
  - Myocardial infarction [Unknown]
  - Diabetes mellitus [Unknown]
  - Chest pain [Unknown]
  - Blood glucose increased [Unknown]
  - Abnormal dreams [Not Recovered/Not Resolved]
  - Middle insomnia [Not Recovered/Not Resolved]
  - Somnolence [Not Recovered/Not Resolved]
  - Insomnia [Not Recovered/Not Resolved]
  - Crying [Not Recovered/Not Resolved]
  - Injury [Not Recovered/Not Resolved]
  - Stress [Unknown]
  - Pain [Unknown]
